FAERS Safety Report 7726169-9 (Version None)
Quarter: 2011Q3

REPORT INFORMATION
  Report Type: 
  Country: None (occurrence: None)
  Receive Date: 20110831
  Receipt Date: 20110823
  Transmission Date: 20111222
  Serious: Yes (Hospitalization)
  Sender: FDA-Public Use
  Company Number: 1000022721

PATIENT
  Age: 67 Year
  Sex: Female
  Weight: 94.8 kg

DRUGS (8)
  1. GLIMEPIRIDE (GLIMEPIRIDE) (GLIMEPIRIDE) [Concomitant]
  2. BYSTOLIC [Suspect]
     Indication: HYPERTENSION
     Dosage: 10 MG (10 MG, 1 IN 1 D), ORAL
     Route: 048
     Dates: start: 20110201, end: 20110201
  3. LISINOPRIL [Concomitant]
  4. AMLODIPINE [Concomitant]
  5. LEVOTHYROXINE (LEVOTHYROXINE SODIUM) (LEVOTHYROXINE SODIUM) [Concomitant]
  6. ALLOPURINOL [Concomitant]
  7. BYSTOLIC [Suspect]
     Indication: HYPERTENSION
     Dosage: 5 MG (5 MG, 1 IN 1 D), ORAL
     Route: 048
     Dates: start: 20110201, end: 20110201
  8. FUROSEMIDE [Concomitant]

REACTIONS (2)
  - DYSPNOEA [None]
  - ELECTROOCULOGRAM ABNORMAL [None]
